FAERS Safety Report 13610326 (Version 1)
Quarter: 2017Q2

REPORT INFORMATION
  Report Type: Spontaneous
  Country: US (occurrence: US)
  Receive Date: 20170602
  Receipt Date: 20170602
  Transmission Date: 20170830
  Serious: Yes (Other)
  Sender: FDA-Public Use
  Company Number: None

PATIENT
  Age: 39 Year
  Sex: Female
  Weight: 78.75 kg

DRUGS (6)
  1. HYDROCHLOROTHIAZIDE. [Concomitant]
     Active Substance: HYDROCHLOROTHIAZIDE
  2. NOVOLIN [Concomitant]
     Active Substance: INSULIN HUMAN
  3. MIBELAS 24 FE [Suspect]
     Active Substance: ETHINYL ESTRADIOL\NORETHINDRONE ACETATE
     Indication: POLYCYSTIC OVARIES
     Route: 048
     Dates: start: 20170503, end: 20170526
  4. NOVOLOG [Concomitant]
     Active Substance: INSULIN ASPART
  5. METFORMIN [Concomitant]
     Active Substance: METFORMIN HYDROCHLORIDE
  6. DIABETIC VITAMINS [Concomitant]

REACTIONS (8)
  - Miliaria [None]
  - Scar [None]
  - Skin discolouration [None]
  - Pain [None]
  - Burning sensation [None]
  - Product substitution issue [None]
  - Skin exfoliation [None]
  - Photosensitivity reaction [None]

NARRATIVE: CASE EVENT DATE: 20170516
